FAERS Safety Report 5370321-7 (Version None)
Quarter: 2007Q2

REPORT INFORMATION
  Report Type: 
  Country: None (occurrence: None)
  Receive Date: 20070626
  Receipt Date: 20061107
  Transmission Date: 20071010
  Serious: Yes (Hospitalization)
  Sender: FDA-Public Use
  Company Number: US-AMGEN-US199471

PATIENT
  Sex: Male

DRUGS (15)
  1. ARANESP [Suspect]
     Indication: DIALYSIS
     Route: 042
     Dates: start: 20041001
  2. CARVEDILOL [Concomitant]
  3. ASPIRIN [Concomitant]
  4. PLAVIX [Concomitant]
  5. ATORVASTATIN [Concomitant]
  6. NITROGLYCERIN [Concomitant]
     Route: 060
  7. GLIPIZIDE [Concomitant]
  8. RENAGEL [Concomitant]
  9. SODIUM BICARBONATE [Concomitant]
  10. PARICALCITOL [Concomitant]
     Route: 042
  11. FERROUS GLUCONATE [Concomitant]
  12. VITAMIN CAP [Concomitant]
  13. TRIAMCINOLONE [Concomitant]
  14. EMLA [Concomitant]
  15. HYDROXYZINE [Concomitant]

REACTIONS (3)
  - INADEQUATE DIET [None]
  - MYOCARDIAL INFARCTION [None]
  - THERAPEUTIC RESPONSE DECREASED [None]
